FAERS Safety Report 4969144-X (Version None)
Quarter: 2006Q2

REPORT INFORMATION
  Report Type: 
  Country: None (occurrence: None)
  Receive Date: 20060411
  Receipt Date: 20050608
  Transmission Date: 20061013
  Serious: Yes (Life-Threatening)
  Sender: FDA-Public Use
  Company Number: US-BRISTOL-MYERS SQUIBB COMPANY-12997847

PATIENT
  Age: 59 Year
  Sex: Female
  Weight: 58 kg

DRUGS (14)
  1. CARBOPLATIN [Suspect]
     Indication: OVARIAN CANCER
     Route: 042
     Dates: start: 20050531, end: 20050531
  2. DECADRON [Concomitant]
     Indication: PREMEDICATION
  3. KYTRIL [Concomitant]
     Indication: PREMEDICATION
     Dosage: AND MAINTENANCE DOSE OF 1 MG AS NECESSARY
     Route: 042
  4. ATIVAN [Concomitant]
     Indication: PREMEDICATION
     Dosage: AND ^15 MG^ AT BEDTIME
     Route: 042
  5. SENOKOT [Concomitant]
  6. GABAPENTIN [Concomitant]
  7. LEXAPRO [Concomitant]
  8. LEVOTHYROXIN [Concomitant]
  9. ADVAIR DISKUS 100/50 [Concomitant]
     Dosage: DOSE = 100/50
  10. CLONAZEPAM [Concomitant]
  11. ALBUTEROL [Concomitant]
  12. PRILOSEC [Concomitant]
  13. TAGAMET [Concomitant]
     Route: 042
  14. BENADRYL [Concomitant]
     Route: 042

REACTIONS (5)
  - CHEST DISCOMFORT [None]
  - DYSPNOEA [None]
  - FLUSHING [None]
  - PRURITUS [None]
  - URTICARIA [None]
